FAERS Safety Report 18363505 (Version 4)
Quarter: 2020Q4

REPORT INFORMATION
  Report Type: Report from Study
  Country: None (occurrence: CL)
  Receive Date: 20201008
  Receipt Date: 20201207
  Transmission Date: 20210114
  Serious: Yes (Other)
  Sender: FDA-Public Use
  Company Number: CL-ABBVIE-20K-034-3595797-00

PATIENT
  Age: 29 Year
  Sex: Female

DRUGS (3)
  1. CELEBRA [Concomitant]
     Active Substance: CELECOXIB
     Indication: PRODUCT USED FOR UNKNOWN INDICATION
  2. ELCAL D PLUS [Concomitant]
     Indication: PRODUCT USED FOR UNKNOWN INDICATION
  3. HUMIRA [Suspect]
     Active Substance: ADALIMUMAB
     Indication: JUVENILE IDIOPATHIC ARTHRITIS
     Route: 058
     Dates: start: 20180102, end: 20200917

REACTIONS (3)
  - Lymphadenopathy [Not Recovered/Not Resolved]
  - COVID-19 [Unknown]
  - Histology abnormal [Unknown]

NARRATIVE: CASE EVENT DATE: 202009
